FAERS Safety Report 17964784 (Version 1)
Quarter: 2020Q2

REPORT INFORMATION
  Report Type: Spontaneous
  Country: US (occurrence: US)
  Receive Date: 20200630
  Receipt Date: 20200630
  Transmission Date: 20200714
  Serious: Yes (Other)
  Sender: FDA-Public Use
  Company Number: US-JNJFOC-20200626510

PATIENT
  Age: 65 Year
  Sex: Male

DRUGS (2)
  1. WHITE PETROLATUM [Suspect]
     Active Substance: PETROLATUM
     Indication: MUCOSAL DRYNESS
     Route: 045
  2. LORATADINE. [Concomitant]
     Active Substance: LORATADINE
     Indication: RHINITIS ALLERGIC
     Route: 065

REACTIONS (2)
  - Mycobacterium chelonae infection [Recovering/Resolving]
  - Pneumonia lipoid [Recovering/Resolving]
